FAERS Safety Report 19718071 (Version 1)
Quarter: 2021Q3

REPORT INFORMATION
  Report Type: Spontaneous
  Country: CN (occurrence: CN)
  Receive Date: 20210818
  Receipt Date: 20210818
  Transmission Date: 20211014
  Serious: Yes (Hospitalization, Other)
  Sender: FDA-Public Use
  Company Number: CN-PFIZER INC-202101007978

PATIENT
  Age: 28 Year
  Sex: Female
  Weight: 71 kg

DRUGS (2)
  1. TAZOCIN [Suspect]
     Active Substance: PIPERACILLIN SODIUM\TAZOBACTAM SODIUM
     Indication: THERAPEUTIC PROCEDURE
     Dosage: 2.25 G, TWICE A DAY
     Route: 042
     Dates: start: 20210709, end: 20210720
  2. ZYVOX [Suspect]
     Active Substance: LINEZOLID
     Indication: THERAPEUTIC PROCEDURE
     Dosage: 0.6 G, TWICE A DAY
     Route: 048
     Dates: start: 20210712, end: 20210721

REACTIONS (3)
  - Anaemia [Unknown]
  - Condition aggravated [Unknown]
  - Haemolysis [Unknown]

NARRATIVE: CASE EVENT DATE: 202107
